FAERS Safety Report 5829869-0 (Version None)
Quarter: 2008Q3

REPORT INFORMATION
  Report Type: 
  Country: None (occurrence: None)
  Receive Date: 20080725
  Receipt Date: 20080702
  Transmission Date: 20090109
  Serious: Yes (Other)
  Sender: FDA-Public Use
  Company Number: THYM-1000706

PATIENT
  Age: 39 Year
  Sex: Female
  Weight: 51 kg

DRUGS (8)
  1. THYMOGLOBULIN [Suspect]
     Indication: KIDNEY TRANSPLANT REJECTION
     Dosage: 1.5 MG/KG, QD, INTRAVENOUS; INTRAVENOUS
     Route: 042
     Dates: start: 20080520, end: 20080521
  2. THYMOGLOBULIN [Suspect]
     Indication: RENAL TRANSPLANT
     Dosage: 1.5 MG/KG, QD, INTRAVENOUS; INTRAVENOUS
     Route: 042
     Dates: start: 20080520, end: 20080521
  3. PREDNISONE [Concomitant]
  4. CELLCEPT [Concomitant]
  5. PROGRAF [Concomitant]
  6. PRILOSEC [Concomitant]
  7. METHYLPREDNISOLONE [Concomitant]
  8. BENADRYL [Concomitant]

REACTIONS (11)
  - ANTIBODY TEST POSITIVE [None]
  - CHILLS [None]
  - CHRONIC ALLOGRAFT NEPHROPATHY [None]
  - HEADACHE [None]
  - HYPERTENSION [None]
  - HYPERTENSIVE CRISIS [None]
  - KIDNEY TRANSPLANT REJECTION [None]
  - NAUSEA [None]
  - PYREXIA [None]
  - SERUM SICKNESS [None]
  - VOMITING [None]
